FAERS Safety Report 7571884-3 (Version None)
Quarter: 2011Q2

REPORT INFORMATION
  Report Type: 
  Country: None (occurrence: None)
  Receive Date: 20110624
  Receipt Date: 20100628
  Transmission Date: 20111010
  Serious: No
  Sender: FDA-Public Use
  Company Number: A0867421A

PATIENT
  Age: 80 Year
  Sex: Female

DRUGS (2)
  1. VERAMYST [Suspect]
     Dosage: 1SPR PER DAY
     Route: 045
     Dates: start: 20100614
  2. ASTEPRO [Suspect]

REACTIONS (4)
  - NERVOUS SYSTEM DISORDER [None]
  - GLOSSODYNIA [None]
  - HYPOAESTHESIA ORAL [None]
  - AGEUSIA [None]
